FAERS Safety Report 24771354 (Version 1)
Quarter: 2024Q4

REPORT INFORMATION
  Report Type: Spontaneous
  Country: US (occurrence: US)
  Receive Date: 20241224
  Receipt Date: 20241224
  Transmission Date: 20250115
  Serious: No
  Sender: BIOGEN
  Company Number: US-BIOGEN-2024BI01294923

PATIENT
  Age: 46 Year
  Sex: Female
  Weight: 106.6 kg

DRUGS (2)
  1. VUMERITY [Suspect]
     Active Substance: DIROXIMEL FUMARATE
     Indication: Relapsing-remitting multiple sclerosis
     Route: 050
     Dates: start: 20220101, end: 20240826
  2. VUMERITY [Suspect]
     Active Substance: DIROXIMEL FUMARATE
     Route: 050
     Dates: start: 20240919, end: 20241003

REACTIONS (7)
  - COVID-19 [Not Recovered/Not Resolved]
  - Lymphadenopathy [Unknown]
  - Pain in jaw [Unknown]
  - Malaise [Unknown]
  - Cognitive disorder [Unknown]
  - Skin tightness [Unknown]
  - Lymphopenia [Unknown]

NARRATIVE: CASE EVENT DATE: 20240101
